FAERS Safety Report 4680431-5 (Version None)
Quarter: 2005Q2

REPORT INFORMATION
  Report Type: 
  Country: None (occurrence: None)
  Receive Date: 20050601
  Receipt Date: 20050519
  Transmission Date: 20051028
  Serious: Yes (Other)
  Sender: FDA-Public Use
  Company Number: FR_050506450

PATIENT
  Age: 56 Year
  Sex: Female

DRUGS (1)
  1. GEMZAR [Suspect]
     Indication: METASTATIC SQUAMOUS CELL CARCINOMA
     Dosage: 14390 MG OTHER

REACTIONS (8)
  - ANTINUCLEAR ANTIBODY POSITIVE [None]
  - ARTERIAL DISORDER [None]
  - ARTERIOGRAM ABNORMAL [None]
  - CRYOGLOBULINS ABSENT [None]
  - ECHOGRAPHY ABNORMAL [None]
  - PERIPHERAL ISCHAEMIA [None]
  - THROMBOCYTHAEMIA [None]
  - VASCULITIS [None]
